FAERS Safety Report 9698535 (Version 2)
Quarter: 2013Q4

REPORT INFORMATION
  Report Type: Spontaneous
  Country: JP (occurrence: JP)
  Receive Date: 20131120
  Receipt Date: 20131202
  Transmission Date: 20140711
  Serious: Yes (Other)
  Sender: FDA-Public Use
  Company Number: JP-PFIZER INC-2013329802

PATIENT
  Age: 9 Decade
  Sex: Female

DRUGS (3)
  1. CELECOX [Suspect]
     Dosage: UNK
     Route: 048
  2. DOGMATYL [Suspect]
     Dosage: UNK
     Route: 048
  3. MICARDIS [Suspect]
     Dosage: UNK
     Route: 048

REACTIONS (1)
  - Colitis microscopic [Unknown]
